FAERS Safety Report 7141146-7 (Version None)
Quarter: 2010Q4

REPORT INFORMATION
  Report Type: 
  Country: None (occurrence: None)
  Receive Date: 20101207
  Receipt Date: 20101104
  Transmission Date: 20110411
  Serious: Yes (Other)
  Sender: FDA-Public Use
  Company Number: US-TYCO HEALTHCARE/MALLINCKRODT-T201002264

PATIENT

DRUGS (1)
  1. EXALGO [Suspect]
     Dosage: 8 MG, UNK

REACTIONS (1)
  - SOMNOLENCE [None]
